FAERS Safety Report 12600137 (Version 1)
Quarter: 2016Q3

REPORT INFORMATION
  Report Type: Spontaneous
  Country: PL (occurrence: PL)
  Receive Date: 20160727
  Receipt Date: 20160727
  Transmission Date: 20161109
  Serious: Yes (Other)
  Sender: FDA-Public Use
  Company Number: PL-ASTELLAS-2016US028782

PATIENT
  Age: 34 Year
  Sex: Female

DRUGS (3)
  1. MYCOPHENOLATE MOFETIL. [Suspect]
     Active Substance: MYCOPHENOLATE MOFETIL
     Indication: RENAL TRANSPLANT
     Dosage: UNK UNK, UNKNOWN FREQ.
     Route: 065
  2. PREDNISONE. [Suspect]
     Active Substance: PREDNISONE
     Indication: RENAL TRANSPLANT
     Dosage: UNK UNK, UNKNOWN FREQ.
     Route: 065
  3. TACROLIMUS. [Suspect]
     Active Substance: TACROLIMUS
     Indication: RENAL TRANSPLANT
     Dosage: UNK, UNKNOWN FREQ.
     Route: 065

REACTIONS (11)
  - Heart rate abnormal [Unknown]
  - Premature delivery [Unknown]
  - Exposure during pregnancy [Unknown]
  - Hypothyroidism [Unknown]
  - Proteinuria [Unknown]
  - Blood creatinine increased [Unknown]
  - Herpes simplex [Unknown]
  - Hepatitis C [Unknown]
  - Hypertension [Unknown]
  - Urinary tract infection [Unknown]
  - Oedema [Unknown]

NARRATIVE: CASE EVENT DATE: 2010
